FAERS Safety Report 18497573 (Version 1)
Quarter: 2020Q4

REPORT INFORMATION
  Report Type: Spontaneous
  Country: US (occurrence: US)
  Receive Date: 20201112
  Receipt Date: 20201112
  Transmission Date: 20210114
  Serious: Yes (Disabling, Other)
  Sender: FDA-Public Use
  Company Number: US-SA-2020SA316600

PATIENT

DRUGS (2)
  1. ADMELOG [Suspect]
     Active Substance: INSULIN LISPRO
     Indication: DIABETES MELLITUS
     Dosage: 28 IU, QID (BEFORE MEALS)
     Route: 065
  2. ADMELOG [Suspect]
     Active Substance: INSULIN LISPRO
     Dosage: UPTO AN ADDITIONAL 20 UNITS DEPENDING ON HER BLOOD SUGAR LEVELS
     Route: 065

REACTIONS (5)
  - Dysphonia [Unknown]
  - Visual impairment [Unknown]
  - Extra dose administered [Unknown]
  - Disability [Unknown]
  - Limb discomfort [Unknown]
